FAERS Safety Report 4798956-0 (Version None)
Quarter: 2005Q4

REPORT INFORMATION
  Report Type: 
  Country: None (occurrence: None)
  Receive Date: 20051014
  Receipt Date: 20051007
  Transmission Date: 20060501
  Serious: Yes (Other)
  Sender: FDA-Public Use
  Company Number: US-GILEAD-2005-0008790

PATIENT

DRUGS (1)
  1. VISTIDE [Suspect]
     Indication: CYTOMEGALOVIRUS CHORIORETINITIS
     Route: 042

REACTIONS (3)
  - IMMUNE RECONSTITUTION SYNDROME [None]
  - UVEITIS [None]
  - VITREOUS OPACITIES [None]
